FAERS Safety Report 4988217-9 (Version None)
Quarter: 2006Q2

REPORT INFORMATION
  Report Type: 
  Country: None (occurrence: None)
  Receive Date: 20060425
  Receipt Date: 20060414
  Transmission Date: 20061013
  Serious: Yes (Hospitalization)
  Sender: FDA-Public Use
  Company Number: 224140

PATIENT
  Age: 50 Year
  Sex: Male

DRUGS (9)
  1. EFALIZUMAB(EFALIZUMAB) PWDR + SOLVENT,INJECTION SOLN, 125MG [Suspect]
     Indication: PSORIASIS
     Dosage: 0.142 MG/KG, 1/WEEK, SUBCUTANEOUS
     Route: 058
     Dates: start: 20050314, end: 20050501
  2. EFALIZUMAB(EFALIZUMAB) PWDR + SOLVENT,INJECTION SOLN, 125MG [Suspect]
     Indication: PSORIASIS
     Dosage: 0.142 MG/KG, 1/WEEK, SUBCUTANEOUS
     Route: 058
     Dates: start: 20050601
  3. VALSARTAN [Concomitant]
  4. ACAMPROSATE (ACAMPROSATE) [Concomitant]
  5. DAIVOBET (BETAMETHASONE DIPROPIONATE, CALCIPOTRIENE) [Concomitant]
  6. HYDROCORTISONE [Concomitant]
  7. AUGMENTIN '250' [Concomitant]
  8. ACETAMINOPHEN [Concomitant]
  9. ENALAPRIL MALEATE [Concomitant]

REACTIONS (17)
  - ALKALOSIS [None]
  - ANGIOTENSIN CONVERTING ENZYME INCREASED [None]
  - CARDIAC FAILURE [None]
  - CARDIAC MURMUR [None]
  - CARDIOVASCULAR DISORDER [None]
  - CHOLESTASIS [None]
  - DIZZINESS [None]
  - DYSPNOEA [None]
  - FIBRIN D DIMER INCREASED [None]
  - HYPOCAPNIA [None]
  - HYPOXIA [None]
  - INFLAMMATION [None]
  - OEDEMA PERIPHERAL [None]
  - PALPITATIONS [None]
  - RALES [None]
  - TACHYCARDIA [None]
  - THROMBOCYTOPENIA [None]
